FAERS Safety Report 14142334 (Version 4)
Quarter: 2018Q4

REPORT INFORMATION
  Report Type: Report from Study
  Country: BR (occurrence: BR)
  Receive Date: 20171030
  Receipt Date: 20181130
  Transmission Date: 20190204
  Serious: Yes (Other)
  Sender: FDA-Public Use
  Company Number: PHHY2017BR151812

PATIENT
  Sex: Male
  Weight: 94 kg

DRUGS (16)
  1. XOLAIR [Suspect]
     Active Substance: OMALIZUMAB
     Dosage: 525 MG, EVERY 15 DAYS
     Route: 058
     Dates: start: 20180926
  2. TIOTROPIO [Concomitant]
     Active Substance: TIOTROPIUM BROMIDE
     Indication: LUNG DISORDER
     Dosage: 1 DF, QD
     Route: 055
  3. ALENIA [Concomitant]
     Active Substance: BUDESONIDE\FORMOTEROL FUMARATE
     Indication: ASTHMA
  4. CARBAMAZEPINE. [Concomitant]
     Active Substance: CARBAMAZEPINE
     Indication: SCHIZOPHRENIA
     Dosage: 3 DF, QD
     Route: 048
  5. XOLAIR [Suspect]
     Active Substance: OMALIZUMAB
     Indication: ASTHMA
     Dosage: 8 DF (150 MG), QMO
     Route: 058
     Dates: start: 2015
  6. TEGRETOL [Suspect]
     Active Substance: CARBAMAZEPINE
     Indication: MENTAL DISORDER
     Dosage: 3 DF, QD  (200 MG)
     Route: 048
  7. TEGRETOL [Suspect]
     Active Substance: CARBAMAZEPINE
     Indication: SCHIZOPHRENIA
     Dosage: 04 TABLETS IN MORNING, 03 AT LUNCH AND 04 AT NIGHT, SINCE 04 YEARS OLD
     Route: 048
  8. METICORTEN [Concomitant]
     Active Substance: PREDNISONE
     Indication: ASTHMA
     Dosage: 2 DF (1 IN MORNING AND NIGHT), QD
     Route: 048
  9. TIOTROPIO [Concomitant]
     Active Substance: TIOTROPIUM BROMIDE
     Indication: ASTHMA
  10. OLANZAPINE. [Concomitant]
     Active Substance: OLANZAPINE
     Indication: SCHIZOPHRENIA
     Dosage: 2 DF, QD (5 MG IN MORNING AND 10 MG AT NIGHT)
     Route: 048
  11. XOLAIR [Suspect]
     Active Substance: OMALIZUMAB
     Indication: LUNG DISORDER
     Dosage: 3.5 DF, EVERY 15 DAYS
     Route: 058
     Dates: start: 2015, end: 201709
  12. XOLAIR [Suspect]
     Active Substance: OMALIZUMAB
     Dosage: UNK
     Route: 058
     Dates: start: 20180502
  13. ALENIA [Concomitant]
     Active Substance: BUDESONIDE\FORMOTEROL FUMARATE
     Indication: LUNG DISORDER
     Dosage: 2 DF (2 PUFFERS), QD (12/400 UG)
     Route: 055
  14. CLONAZEPAM. [Concomitant]
     Active Substance: CLONAZEPAM
     Indication: PRODUCT USED FOR UNKNOWN INDICATION
     Dosage: 1 TABLET IN MORNING, AFTERNOON AD NIGHT, STARTED 1.5 YEARS AGO
     Route: 048
  15. AMPLICTIL [Concomitant]
     Active Substance: CHLORPROMAZINE HYDROCHLORIDE
     Indication: SCHIZOPHRENIA
     Dosage: 04 TABLETS IN MORNING, 03 AT LUNCH AND 04 AT NIGHT, USING SINCE 4 YEARS OLD
     Route: 048
  16. TIOTROPIUM [Concomitant]
     Active Substance: TIOTROPIUM
     Indication: ASTHMA
     Dosage: 2 DF (2 PUFFERS), QD
     Route: 055

REACTIONS (11)
  - Asthma [Recovered/Resolved]
  - Speech disorder [Recovering/Resolving]
  - Platelet count decreased [Unknown]
  - Fatigue [Unknown]
  - Dyspnoea [Recovering/Resolving]
  - Malaise [Recovering/Resolving]
  - Weight increased [Unknown]
  - Product use in unapproved indication [Unknown]
  - Asthmatic crisis [Unknown]
  - Drug dependence [Unknown]
  - Lung disorder [Unknown]
